FAERS Safety Report 18349409 (Version 2)
Quarter: 2020Q4

REPORT INFORMATION
  Report Type: Spontaneous
  Country: DE (occurrence: DE)
  Receive Date: 20201006
  Receipt Date: 20201013
  Transmission Date: 20210114
  Serious: Yes (Death)
  Sender: FDA-Public Use
  Company Number: DE-MDD US OPERATIONS-E2B_00003529

PATIENT
  Age: 80 Year
  Sex: Male

DRUGS (6)
  1. CARBIDOPA, LEVODOPA AND ENTACAPONE 25/100/200 [Concomitant]
     Indication: PARKINSON^S DISEASE
     Dosage: 25/100/200MG
     Dates: start: 2007
  2. XADAGO [Suspect]
     Active Substance: SAFINAMIDE MESYLATE
     Indication: PRODUCT USED FOR UNKNOWN INDICATION
     Dates: start: 2019
  3. XADAGO [Suspect]
     Active Substance: SAFINAMIDE MESYLATE
     Dates: start: 2019, end: 2019
  4. PRAMIPEXOLE. [Concomitant]
     Active Substance: PRAMIPEXOLE
     Indication: PARKINSON^S DISEASE
     Dates: start: 2007
  5. RIVASTIGMINE. [Concomitant]
     Active Substance: RIVASTIGMINE
     Indication: DEMENTIA
     Dates: start: 2018
  6. CARBIDOPA, LEVODOPA AND ENTACAPONE 12.5/50/200 [Concomitant]
     Indication: PARKINSON^S DISEASE
     Dosage: 12.5/50/200MG

REACTIONS (1)
  - Death [Fatal]

NARRATIVE: CASE EVENT DATE: 202005
